FAERS Safety Report 24290243 (Version 5)
Quarter: 2024Q4

REPORT INFORMATION
  Report Type: Report from Study
  Country: KR (occurrence: KR)
  Receive Date: 20240906
  Receipt Date: 20241113
  Transmission Date: 20250115
  Serious: Yes (Hospitalization, Other)
  Sender: CELLTRION
  Company Number: KR-CELLTRION INC.-2024KR021104

PATIENT

DRUGS (19)
  1. HERZUMA [Suspect]
     Active Substance: TRASTUZUMAB-PKRB
     Indication: HER2 positive breast cancer
     Dosage: 8 MG/KG AS LOADING DOSE AND MAINTENANCE DOSE AT 6MG/KG EVERY 3 WEEKS (537MG)
     Route: 042
     Dates: start: 20220510, end: 20240813
  2. HERZUMA [Suspect]
     Active Substance: TRASTUZUMAB-PKRB
     Dosage: MAINTENANCE DOSE AT 6MG/KG EVERY 3 WEEKS
     Route: 042
     Dates: start: 20220617
  3. HERZUMA [Suspect]
     Active Substance: TRASTUZUMAB-PKRB
     Dosage: EVERY 3WEEKS
     Route: 042
  4. HERZUMA [Suspect]
     Active Substance: TRASTUZUMAB-PKRB
     Dosage: EVERY 3WEEKS
     Route: 042
  5. HERZUMA [Suspect]
     Active Substance: TRASTUZUMAB-PKRB
     Dosage: EVERY 3WEEKS
     Route: 042
  6. HERZUMA [Suspect]
     Active Substance: TRASTUZUMAB-PKRB
     Dosage: EVERY 3WEEKS
     Route: 042
  7. HERZUMA [Suspect]
     Active Substance: TRASTUZUMAB-PKRB
     Dosage: EVERY 3WEEKS
     Route: 042
  8. HERZUMA [Suspect]
     Active Substance: TRASTUZUMAB-PKRB
     Dosage: EVERY 3WEEKS
     Route: 042
  9. HERZUMA [Suspect]
     Active Substance: TRASTUZUMAB-PKRB
     Dosage: 403MG(6MG/KG)
     Dates: start: 20220628, end: 20240207
  10. HERZUMA [Suspect]
     Active Substance: TRASTUZUMAB-PKRB
     Dosage: 357.6MG(CHANGE BSA OVER 10%)
     Dates: start: 20240228, end: 20240813
  11. RIBOCICLIB [Suspect]
     Active Substance: RIBOCICLIB
     Indication: Breast cancer stage IV
     Dosage: 600 MG
     Route: 048
  12. RIBOCICLIB [Suspect]
     Active Substance: RIBOCICLIB
     Dosage: 400 MG
     Route: 048
     Dates: start: 20240305, end: 20240812
  13. FEMARA [Suspect]
     Active Substance: LETROZOLE
     Indication: Breast cancer stage IV
     Dosage: 2.5 MG
     Route: 048
     Dates: end: 20240826
  14. FAMOTIDINE [Concomitant]
     Active Substance: FAMOTIDINE
     Indication: Prophylaxis
     Dosage: 20 MG
     Route: 042
     Dates: start: 20220510, end: 20240813
  15. DEXAMETHASONE SODIUM PHOSPHATE [Concomitant]
     Active Substance: DEXAMETHASONE SODIUM PHOSPHATE
     Indication: Prophylaxis
     Dosage: 5 MG IV STAT
     Route: 042
     Dates: start: 20230529, end: 20240813
  16. TWOLION [Concomitant]
     Indication: Eczema
     Dosage: 10 MG, BID
     Route: 048
     Dates: start: 20240716
  17. HYDROXYZINE HYDROCHLORIDE [Concomitant]
     Active Substance: HYDROXYZINE HYDROCHLORIDE
     Indication: Eczema
     Dosage: 10 MG, BID
     Route: 048
     Dates: start: 20240716
  18. ALLESTIN [Concomitant]
     Indication: Eczema
     Dosage: 10 MG, BID
     Route: 048
     Dates: start: 20240716
  19. CHLORPHENIRAMINE MALEATE [Concomitant]
     Active Substance: CHLORPHENIRAMINE MALEATE
     Indication: Prophylaxis
     Dosage: 4 MG STAT IV
     Route: 042
     Dates: start: 20220411, end: 20240813

REACTIONS (9)
  - Metastases to lung [Recovered/Resolved with Sequelae]
  - Electrocardiogram QT prolonged [Recovered/Resolved]
  - Pneumonia [Recovered/Resolved with Sequelae]
  - Neutropenia [Recovered/Resolved]
  - Pneumonitis [Recovered/Resolved]
  - Fall [Recovered/Resolved]
  - Musculoskeletal chest pain [Recovered/Resolved]
  - Liver function test increased [Recovered/Resolved]
  - Pyrexia [Recovered/Resolved]

NARRATIVE: CASE EVENT DATE: 20240214
